FAERS Safety Report 16046190 (Version 2)
Quarter: 2019Q1

REPORT INFORMATION
  Report Type: Spontaneous
  Country: US (occurrence: US)
  Receive Date: 20190307
  Receipt Date: 20190319
  Transmission Date: 20190418
  Serious: No
  Sender: FDA-Public Use
  Company Number: US-BIOGEN-2019BI00705410

PATIENT
  Sex: Male

DRUGS (2)
  1. OMEGA 3 [Concomitant]
     Active Substance: OMEGA-3 FATTY ACIDS
     Route: 065
  2. TECFIDERA [Suspect]
     Active Substance: DIMETHYL FUMARATE
     Indication: MULTIPLE SCLEROSIS
     Route: 065
     Dates: start: 20190228

REACTIONS (10)
  - Vomiting [Unknown]
  - Fatigue [Not Recovered/Not Resolved]
  - Weight increased [Not Recovered/Not Resolved]
  - Weight increased [Unknown]
  - Flushing [Recovered/Resolved]
  - Dysgeusia [Unknown]
  - Erythema [Unknown]
  - Drug hypersensitivity [Not Recovered/Not Resolved]
  - Pruritus [Recovered/Resolved]
  - Swelling [Unknown]
